FAERS Safety Report 25698339 (Version 1)
Quarter: 2025Q3

REPORT INFORMATION
  Report Type: Report from Study
  Country: GB (occurrence: GB)
  Receive Date: 20250819
  Receipt Date: 20250819
  Transmission Date: 20251020
  Serious: Yes (Hospitalization)
  Sender: ABBVIE
  Company Number: GB-ABBVIE-6419152

PATIENT
  Sex: Female

DRUGS (1)
  1. RINVOQ [Suspect]
     Active Substance: UPADACITINIB
     Indication: Colitis ulcerative
     Dosage: RINVOQ 15 MG 28 TABLET 4 X 7 TABLETS
     Route: 048
     Dates: end: 20250716

REACTIONS (2)
  - Hernia [Unknown]
  - Adverse drug reaction [Not Recovered/Not Resolved]
